FAERS Safety Report 23639214 (Version 1)
Quarter: 2024Q1

REPORT INFORMATION
  Report Type: Spontaneous
  Country: US (occurrence: US)
  Receive Date: 20240315
  Receipt Date: 20240315
  Transmission Date: 20240410
  Serious: No
  Sender: FDA-Public Use
  Company Number: US-TEVA-VS-3164737

PATIENT
  Age: 40 Year
  Sex: Female

DRUGS (1)
  1. RISPERIDONE [Suspect]
     Active Substance: RISPERIDONE
     Indication: Product used for unknown indication
     Dosage: INJECTABLE SUSPENSION - EXTENDED RELEASE
     Route: 065

REACTIONS (3)
  - Device difficult to use [Unknown]
  - Product dose omission issue [Unknown]
  - Bedridden [Unknown]
